FAERS Safety Report 25616260 (Version 1)
Quarter: 2025Q3

REPORT INFORMATION
  Report Type: Spontaneous
  Country: US (occurrence: US)
  Receive Date: 20250729
  Receipt Date: 20250729
  Transmission Date: 20251021
  Serious: No
  Sender: KINDEVA DRUG DELIVERY L.P.
  Company Number: US-Kindeva Drug Delivery L.P.-2181409

PATIENT
  Age: 66 Year
  Sex: Female

DRUGS (1)
  1. ALBUTEROL SULFATE [Suspect]
     Active Substance: ALBUTEROL SULFATE
     Indication: Chronic obstructive pulmonary disease

REACTIONS (3)
  - Drug delivery system malfunction [Unknown]
  - Malaise [Unknown]
  - Device defective [Unknown]
